FAERS Safety Report 13416853 (Version 3)
Quarter: 2017Q2

REPORT INFORMATION
  Report Type: Report from Study
  Country: None (occurrence: RU)
  Receive Date: 20170406
  Receipt Date: 20170505
  Transmission Date: 20170830
  Serious: Yes (Other)
  Sender: FDA-Public Use
  Company Number: RU-ABBVIE-17P-251-1932048-00

PATIENT
  Age: 32 Year
  Sex: Female

DRUGS (6)
  1. LAMIVUDINE W/ZIDOVUDINE [Concomitant]
     Active Substance: LAMIVUDINE\ZIDOVUDINE
     Indication: HIV INFECTION
     Dosage: FIRST TRIMESTER EARLIEST EXPOSURE WAS TAKING PRIOR TO CONCEPTION  1 COURSE TAKEN
     Route: 048
     Dates: end: 20170115
  2. RILPIVIRINE [Concomitant]
     Active Substance: RILPIVIRINE
     Indication: HIV INFECTION
     Dosage: FIRST TRIMESTER EARLIEST EXPOSURE WAS TAKING PRIOR TO CONCEPTION  1 COURSE TAKEN
     Route: 048
     Dates: start: 20170116, end: 20170219
  3. LOPINAVIR/RITONAVIR [Suspect]
     Active Substance: LOPINAVIR\RITONAVIR
     Route: 048
     Dates: start: 20170219
  4. LOPINAVIR/RITONAVIR [Suspect]
     Active Substance: LOPINAVIR\RITONAVIR
     Indication: HIV INFECTION
     Dosage: FIRST TRIMESTER EARLIEST EXPOSURE WAS TAKING PRIOR TO CONCEPTION   1 COURSE TAKEN
     Route: 048
     Dates: end: 20170115
  5. LAMIVUDINE W/ZIDOVUDINE [Concomitant]
     Active Substance: LAMIVUDINE\ZIDOVUDINE
     Route: 048
     Dates: start: 20170219
  6. CABOTEGRAVIR [Concomitant]
     Active Substance: CABOTEGRAVIR
     Indication: HIV INFECTION
     Route: 048
     Dates: start: 20170116, end: 20170119

REACTIONS (2)
  - Abortion induced [Unknown]
  - Exposure during pregnancy [Unknown]
